FAERS Safety Report 6988144-1 (Version None)
Quarter: 2010Q3

REPORT INFORMATION
  Report Type: 
  Country: None (occurrence: None)
  Receive Date: 20100916
  Receipt Date: 20100903
  Transmission Date: 20110219
  Serious: Yes (Other)
  Sender: FDA-Public Use
  Company Number: PHHY2010GB59365

PATIENT
  Age: 44 Year
  Sex: Male

DRUGS (1)
  1. ZOMETA [Suspect]
     Indication: HYPERCALCAEMIA OF MALIGNANCY

REACTIONS (3)
  - BLOOD CALCIUM INCREASED [None]
  - NEPHRECTOMY [None]
  - TUMOUR COMPRESSION [None]
